FAERS Safety Report 18475456 (Version 2)
Quarter: 2020Q4

REPORT INFORMATION
  Report Type: Not Available
  Country: US (occurrence: US)
  Receive Date: 20201106
  Receipt Date: 20201203
  Transmission Date: 20210114
  Serious: Yes (Hospitalization, Other)
  Sender: FDA-Public Use
  Company Number: US-NEUROCRINE BIOSCIENCES INC.-2020NBI03975

PATIENT
  Age: 69 Year
  Sex: Male

DRUGS (8)
  1. TRAZODONE [Concomitant]
     Active Substance: TRAZODONE HYDROCHLORIDE
     Dosage: AT BEDTIME; VIA PEG TUBE
  2. INGREZZA [Suspect]
     Active Substance: VALBENAZINE
     Route: 048
     Dates: start: 20190517
  3. KLONOPIN [Concomitant]
     Active Substance: CLONAZEPAM
     Dosage: FIVE TIMES DAILY AS NEEDED; VIA PEG TUBE
  4. PAXIL [Concomitant]
     Active Substance: PAROXETINE HYDROCHLORIDE
     Dosage: AT BEDTIME; VIA PEG TUBE
  5. INGREZZA [Suspect]
     Active Substance: VALBENAZINE
     Indication: TARDIVE DYSKINESIA
     Route: 048
     Dates: start: 20190510, end: 20190517
  6. PAXIL [Concomitant]
     Active Substance: PAROXETINE HYDROCHLORIDE
     Dosage: VIA PEG TUBE
  7. DEPAKOTE [Concomitant]
     Active Substance: DIVALPROEX SODIUM
     Dosage: MORNING AND AFTERNOON; VIA PEG TUBE
  8. DEPAKOTE [Concomitant]
     Active Substance: DIVALPROEX SODIUM
     Dosage: AT BEDTIME; VIA PEG TUBE

REACTIONS (4)
  - Respiratory failure [Recovered/Resolved]
  - Reflux laryngitis [Recovered/Resolved]
  - Coronavirus test positive [Unknown]
  - Aspiration [Unknown]

NARRATIVE: CASE EVENT DATE: 202002
